FAERS Safety Report 4415047-9 (Version None)
Quarter: 2004Q3

REPORT INFORMATION
  Report Type: 
  Country: None (occurrence: None)
  Receive Date: 20040803
  Receipt Date: 20040719
  Transmission Date: 20050211
  Serious: Yes (Disabling)
  Sender: FDA-Public Use
  Company Number: 2004GB01763

PATIENT
  Age: 36 Year
  Sex: Male
  Weight: 104 kg

DRUGS (2)
  1. CRESTOR [Suspect]
     Dosage: 20 MG DAILY PO
     Route: 048
     Dates: start: 20031104, end: 20040617
  2. ALBUTEROL SULFATE [Concomitant]

REACTIONS (3)
  - LIVER DISORDER [None]
  - MALAISE [None]
  - MYALGIA [None]
